FAERS Safety Report 6615111-X (Version None)
Quarter: 2010Q1

REPORT INFORMATION
  Report Type: 
  Country: None (occurrence: None)
  Receive Date: 20100305
  Receipt Date: 20100222
  Transmission Date: 20100710
  Serious: Yes (Other)
  Sender: FDA-Public Use
  Company Number: IT-PFIZER INC-2010026946

PATIENT
  Age: 33 Year
  Sex: Male

DRUGS (1)
  1. METHYLPREDNISOLONE ACETATE [Suspect]

REACTIONS (1)
  - HEPATOTOXICITY [None]
